FAERS Safety Report 6348243-4 (Version None)
Quarter: 2009Q3

REPORT INFORMATION
  Report Type: 
  Country: None (occurrence: None)
  Receive Date: 20090908
  Receipt Date: 20090824
  Transmission Date: 20100115
  Serious: Yes (Other)
  Sender: FDA-Public Use
  Company Number: 2009002565

PATIENT
  Age: 58 Year
  Sex: Female

DRUGS (5)
  1. ERLOTINIB (TABLET) [Suspect]
     Indication: LUNG ADENOCARCINOMA
     Dosage: ORAL
     Route: 048
  2. DEXAMETHASONE TAB [Concomitant]
  3. DICLOFENAC SODIUM [Concomitant]
  4. OXYCODONE HCL [Concomitant]
  5. FENTANYL-100 [Concomitant]

REACTIONS (2)
  - ABDOMINAL DISTENSION [None]
  - PARONYCHIA [None]
